FAERS Safety Report 24157158 (Version 1)
Quarter: 2024Q3

REPORT INFORMATION
  Report Type: Spontaneous
  Country: TW (occurrence: TW)
  Receive Date: 20240731
  Receipt Date: 20240731
  Transmission Date: 20241017
  Serious: Yes (Life-Threatening, Hospitalization, Other)
  Sender: LEADING PHARMA
  Company Number: TW-LEADINGPHARMA-TW-2024LEALIT00320

PATIENT
  Age: 33 Year
  Sex: Female

DRUGS (4)
  1. LACOSAMIDE [Suspect]
     Active Substance: LACOSAMIDE
     Indication: Status epilepticus
     Dosage: SINGLE LOADING DOSE
     Route: 042
  2. SODIUM CHLORIDE [Concomitant]
     Active Substance: SODIUM CHLORIDE
     Indication: Medication dilution
     Route: 042
  3. LORAZEPAM [Concomitant]
     Active Substance: LORAZEPAM
     Indication: Product used for unknown indication
     Route: 050
  4. OXCARBAZEPINE [Concomitant]
     Active Substance: OXCARBAZEPINE
     Indication: Product used for unknown indication
     Route: 065

REACTIONS (6)
  - Brugada syndrome [Recovered/Resolved]
  - Ventricular tachyarrhythmia [Recovered/Resolved]
  - Focal dyscognitive seizures [Recovered/Resolved]
  - Partial seizures [Recovered/Resolved]
  - Cyanosis [Recovered/Resolved]
  - Pulse absent [Recovered/Resolved]
